FAERS Safety Report 23985033 (Version 2)
Quarter: 2024Q4

REPORT INFORMATION
  Report Type: Spontaneous
  Country: CA (occurrence: CA)
  Receive Date: 20240618
  Receipt Date: 20241125
  Transmission Date: 20250115
  Serious: Yes (Hospitalization, Other)
  Sender: ACCORD
  Company Number: CA-Accord-429808

PATIENT
  Age: 49 Year
  Sex: Male

DRUGS (5)
  1. MYCOPHENOLATE MOFETIL [Suspect]
     Active Substance: MYCOPHENOLATE MOFETIL
     Indication: Immunosuppression
     Dosage: TABLETS
  2. TACROLIMUS [Suspect]
     Active Substance: TACROLIMUS
     Indication: Immunosuppression
     Dosage: TARGET TROUGH 5-10 UG/L??CAPSULES
  3. THYMOCYTE IMMUNE GLOBULIN NOS [Suspect]
     Active Substance: THYMOCYTE IMMUNE GLOBULIN NOS
     Indication: Immunosuppression
  4. PREDNISONE [Suspect]
     Active Substance: PREDNISONE
     Indication: Immunosuppression
     Dosage: INCREASED TO 10MG/D
  5. PREDNISONE [Suspect]
     Active Substance: PREDNISONE
     Indication: Immunosuppression
     Dosage: INCREASED TO 10MG/D

REACTIONS (3)
  - COVID-19 [Recovered/Resolved]
  - Central nervous system fungal infection [Recovered/Resolved]
  - Disseminated cryptococcosis [Recovered/Resolved]
